FAERS Safety Report 9469071 (Version 1)
Quarter: 2013Q3

REPORT INFORMATION
  Report Type: Report from Study
  Country: US (occurrence: US)
  Receive Date: 20130821
  Receipt Date: 20130821
  Transmission Date: 20140515
  Serious: Yes (Hospitalization)
  Sender: FDA-Public Use
  Company Number: US-WATSON-2013-14443

PATIENT
  Age: 48 Year
  Sex: Female

DRUGS (2)
  1. TRELSTAR (WATSON LABORATORIES) [Suspect]
     Indication: BREAST CANCER
     Dosage: 3.75 MG, UNK
     Route: 030
     Dates: start: 20060908, end: 20111026
  2. TAMOXIFEN CITRATE (WATSON LABORATORIES) [Suspect]
     Indication: BREAST CANCER
     Dosage: 20MG, UNK
     Route: 048
     Dates: start: 20061020, end: 20111118

REACTIONS (2)
  - Ovarian cyst [Recovered/Resolved]
  - Uterine polyp [Recovered/Resolved]
